FAERS Safety Report 7326677-9 (Version None)
Quarter: 2011Q1

REPORT INFORMATION
  Report Type: 
  Country: None (occurrence: None)
  Receive Date: 20110302
  Receipt Date: 20110223
  Transmission Date: 20110831
  Serious: Yes (Hospitalization)
  Sender: FDA-Public Use
  Company Number: US-SANOFI-AVENTIS-2011SA012063

PATIENT
  Age: 101 Year
  Sex: Female

DRUGS (2)
  1. PLAVIX [Suspect]
     Route: 065
  2. ANTIBIOTICS [Suspect]
     Indication: CELLULITIS
     Route: 042

REACTIONS (3)
  - NECROSIS [None]
  - INFUSION SITE EXTRAVASATION [None]
  - INFUSION SITE HAEMORRHAGE [None]
